FAERS Safety Report 11279876 (Version 1)
Quarter: 2015Q3

REPORT INFORMATION
  Report Type: Spontaneous
  Country: ES (occurrence: ES)
  Receive Date: 20150717
  Receipt Date: 20150717
  Transmission Date: 20151125
  Serious: Yes (Death)
  Sender: FDA-Public Use
  Company Number: ES-ABBVIE-15P-144-1427113-00

PATIENT
  Sex: Female
  Weight: 45 kg

DRUGS (5)
  1. XERISTAR [Concomitant]
     Active Substance: DULOXETINE HYDROCHLORIDE
     Indication: DYSTHYMIC DISORDER
     Route: 048
     Dates: start: 2010
  2. DUODOPA [Suspect]
     Active Substance: CARBIDOPA\LEVODOPA
     Indication: PARKINSON^S DISEASE
     Route: 050
     Dates: start: 201211, end: 20150711
  3. REXER [Concomitant]
     Active Substance: MIRTAZAPINE
     Indication: INSOMNIA
     Route: 048
     Dates: start: 2010
  4. ADIRO [Concomitant]
     Active Substance: ASPIRIN
     Indication: PERIPHERAL VENOUS DISEASE
     Route: 048
     Dates: start: 2006
  5. SIMVASTATINA [Concomitant]
     Active Substance: SIMVASTATIN
     Indication: HYPERCHOLESTEROLAEMIA
     Route: 048
     Dates: start: 2006

REACTIONS (1)
  - Death [Fatal]

NARRATIVE: CASE EVENT DATE: 20150711
